FAERS Safety Report 12653607 (Version 2)
Quarter: 2016Q4

REPORT INFORMATION
  Report Type: Spontaneous
  Country: US (occurrence: US)
  Receive Date: 20160815
  Receipt Date: 20161022
  Transmission Date: 20170207
  Serious: No
  Sender: FDA-Public Use
  Company Number: US-ASTRAZENECA-2016SE80899

PATIENT
  Sex: Female

DRUGS (2)
  1. BRILINTA [Suspect]
     Active Substance: TICAGRELOR
     Indication: ACUTE CORONARY SYNDROME
     Route: 048
  2. OTHER MEDICATION [Concomitant]
     Active Substance: UNSPECIFIED INGREDIENT

REACTIONS (5)
  - Malaise [Unknown]
  - Cough [Unknown]
  - Diarrhoea [Unknown]
  - Contusion [Unknown]
  - Epistaxis [Unknown]
